FAERS Safety Report 9913374 (Version 1)
Quarter: 2014Q1

REPORT INFORMATION
  Report Type: Spontaneous
  Country: US (occurrence: None)
  Receive Date: 20140218
  Receipt Date: 20140218
  Transmission Date: 20141002
  Serious: Yes (Life-Threatening, Hospitalization)
  Sender: FDA-Public Use
  Company Number: None

PATIENT
  Age: 71 Year
  Sex: 0
  Weight: 112.95 kg

DRUGS (6)
  1. DABIGATRAN [Suspect]
     Indication: ATRIAL FIBRILLATION
     Route: 048
     Dates: start: 20140205, end: 20140210
  2. ACTIVE OUTPATIENT MEDICATIONS STATUS [Concomitant]
  3. SUPPOSITORY ACTIVE [Concomitant]
  4. BRIMONIDINE TARTRATE [Concomitant]
  5. DABIGATRAN ETEXILATE [Concomitant]
  6. HYDROCODONE/ACETAMINOPHEN [Concomitant]

REACTIONS (1)
  - Myocardial infarction [None]
